FAERS Safety Report 13186943 (Version 1)
Quarter: 2017Q1

REPORT INFORMATION
  Report Type: Other
  Country: PL (occurrence: PL)
  Receive Date: 20170206
  Receipt Date: 20170206
  Transmission Date: 20170428
  Serious: Yes (Hospitalization)
  Sender: FDA-Public Use
  Company Number: PL-DEXPHARM-20170059

PATIENT
  Age: 54 Year
  Sex: Female

DRUGS (5)
  1. KETONAL [Suspect]
     Active Substance: KETOPROFEN
  2. TRAMAL [Suspect]
     Active Substance: TRAMADOL
  3. DIKLOFENAK [Suspect]
     Active Substance: DICLOFENAC SODIUM
  4. IBUPROM [Suspect]
     Active Substance: IBUPROFEN
  5. ASPIRIN. [Suspect]
     Active Substance: ASPIRIN

REACTIONS (1)
  - Gastric ulcer [Recovered/Resolved with Sequelae]
